FAERS Safety Report 8419361-1 (Version None)
Quarter: 2012Q2

REPORT INFORMATION
  Report Type: 
  Country: None (occurrence: None)
  Receive Date: 20120607
  Receipt Date: 20120604
  Transmission Date: 20120825
  Serious: Yes (Other)
  Sender: FDA-Public Use
  Company Number: CO-PFIZER INC-2012134989

PATIENT
  Age: 61 Year
  Sex: Female

DRUGS (11)
  1. FUROSEMIDE [Concomitant]
     Indication: POLYURIA
     Dosage: 40 MG, UNK
  2. LEVOTHYROXINE SODIUM [Concomitant]
     Dosage: 150 MG, 1X/DAY, 100 IN THE MORNING, 50 IN THE EVENING
  3. FLUOXETINE [Concomitant]
     Indication: DEPRESSION
     Dosage: UNK
  4. VERAPAMIL [Concomitant]
     Indication: HYPERTENSION
     Dosage: 120 MG, UNK
     Route: 048
  5. ACETAMINOPHEN [Concomitant]
     Indication: PAIN
     Dosage: 500 MG, EIGHTFOLD PER DAY ORALLY
     Route: 048
  6. OMEPRAZOLE [Concomitant]
     Indication: ABDOMINAL PAIN UPPER
     Dosage: 2 PILL IN FAST
     Dates: start: 20080101
  7. METFORMIN [Concomitant]
     Indication: BLOOD GLUCOSE ABNORMAL
     Dosage: UNK
  8. LYRICA [Suspect]
     Indication: ARTHRALGIA
     Dosage: 150 MG, 2X/DAY
     Route: 048
     Dates: start: 20120521
  9. GEMFIBROZIL [Concomitant]
     Indication: BLOOD CHOLESTEROL
     Dosage: 600 MG, UNK
     Route: 048
  10. DICLOFENAC [Concomitant]
     Indication: PAIN
  11. LYRICA [Suspect]
     Indication: OSTEOARTHRITIS

REACTIONS (4)
  - DIARRHOEA [None]
  - BRONCHITIS CHRONIC [None]
  - HEADACHE [None]
  - VOMITING [None]
